FAERS Safety Report 20192769 (Version 3)
Quarter: 2023Q1

REPORT INFORMATION
  Report Type: Report from Study
  Country: US (occurrence: None)
  Receive Date: 20211216
  Receipt Date: 20230208
  Transmission Date: 20230418
  Serious: Yes (Other)
  Sender: FDA-Public Use
  Company Number: US-ROCHE-2980900

PATIENT
  Age: 66 Year
  Sex: Female

DRUGS (5)
  1. BEVACIZUMAB [Suspect]
     Active Substance: BEVACIZUMAB
     Indication: Ovarian cancer
     Dosage: ON 07/MAY/2019, 04/JUN/2019, 30/JUL/2019,  04/SEP/2019, 01/OCT/2019, 05/NOV/2019 SHE RECEIVED BEVACI
     Route: 042
     Dates: start: 20181211
  2. BEVACIZUMAB [Suspect]
     Active Substance: BEVACIZUMAB
     Dosage: ON, 03/JUL/2019, 07/JAN/2020, SHE RECEIVED BEVACIZUMAB 755 MG
     Route: 042
     Dates: start: 20190122
  3. BEVACIZUMAB [Suspect]
     Active Substance: BEVACIZUMAB
     Dosage: ON 31/MAR/2020, 07/JUL/2020 SHE RECEIVED BEVACIZUMAB 675  MG?04/FEB/2020,
     Route: 042
     Dates: start: 20200204
  4. BEVACIZUMAB [Suspect]
     Active Substance: BEVACIZUMAB
     Dosage: ON 05/MAY/2020, 09/JUN/2020,05/AUG/2020, 01/SEP/2020, 29/SEP/2020, 27/OCT/2020, 24/NOV/2020 SHE RECE
     Route: 042
     Dates: start: 20200303
  5. BEVACIZUMAB [Suspect]
     Active Substance: BEVACIZUMAB
     Dosage: ON 07/MAY/2019, 04/JUN/2019, 30/JUL/2019,  04/SEP/2019, 01/OCT/2019, 05/NOV/2019 SHE RECEIVED BEVACI
     Route: 042
     Dates: start: 20190409

REACTIONS (2)
  - Alanine aminotransferase increased [Unknown]
  - Aspartate aminotransferase increased [Unknown]

NARRATIVE: CASE EVENT DATE: 20190110
